FAERS Safety Report 4723561-1 (Version None)
Quarter: 2005Q3

REPORT INFORMATION
  Report Type: 
  Country: None (occurrence: None)
  Receive Date: 20050720
  Receipt Date: 20050713
  Transmission Date: 20060218
  Serious: Yes (Hospitalization)
  Sender: FDA-Public Use
  Company Number: THYM-10636

PATIENT
  Age: 50 Year
  Sex: Male
  Weight: 96.1 kg

DRUGS (3)
  1. THYMOGLOBULIN [Suspect]
     Indication: RENAL TRANSPLANT
     Dosage: 100 MG QD IV
     Route: 042
     Dates: start: 20050617, end: 20050621
  2. CYCLOSPORINE [Concomitant]
  3. MYCOPHENOLATE MOFETIL [Concomitant]

REACTIONS (5)
  - ANAEMIA [None]
  - COMPLICATIONS OF TRANSPLANT SURGERY [None]
  - EFFUSION [None]
  - KIDNEY TRANSPLANT REJECTION [None]
  - PNEUMONIA [None]
